FAERS Safety Report 24391978 (Version 1)
Quarter: 2024Q4

REPORT INFORMATION
  Report Type: Spontaneous
  Country: US (occurrence: None)
  Receive Date: 20241002
  Receipt Date: 20241002
  Transmission Date: 20250114
  Serious: No
  Sender: Public
  Company Number: None

PATIENT
  Age: 56 Year
  Sex: Female

DRUGS (1)
  1. ROPINIROLE [Suspect]
     Active Substance: ROPINIROLE

REACTIONS (3)
  - Gambling disorder [None]
  - Bankruptcy [None]
  - Product communication issue [None]
